FAERS Safety Report 18217308 (Version 1)
Quarter: 2020Q3

REPORT INFORMATION
  Report Type: Spontaneous
  Country: US (occurrence: US)
  Receive Date: 20200831
  Receipt Date: 20200831
  Transmission Date: 20201103
  Serious: Yes (Hospitalization)
  Sender: FDA-Public Use
  Company Number: None

PATIENT
  Age: 68 Year
  Sex: Male
  Weight: 71 kg

DRUGS (2)
  1. CISPLATIN (CISPLATIN 10MG/VIL INJ) [Suspect]
     Active Substance: CISPLATIN
     Indication: TONSIL CANCER
     Dates: start: 20200602, end: 20200602
  2. DEXAMETHASONE (DEXAMETHASONE 6MG TAB) [Suspect]
     Active Substance: DEXAMETHASONE
     Indication: TONSIL CANCER
     Route: 048
     Dates: start: 20200602, end: 20200602

REACTIONS (1)
  - Oesophageal candidiasis [None]

NARRATIVE: CASE EVENT DATE: 20200608
